FAERS Safety Report 6585373-6 (Version None)
Quarter: 2010Q1

REPORT INFORMATION
  Report Type: 
  Country: None (occurrence: None)
  Receive Date: 20100217
  Receipt Date: 20100209
  Transmission Date: 20100710
  Serious: Yes (Hospitalization)
  Sender: FDA-Public Use
  Company Number: JP-BAYER-200913337BYL

PATIENT
  Age: 79 Year
  Sex: Male
  Weight: 55 kg

DRUGS (18)
  1. NEXAVAR [Suspect]
     Indication: HEPATIC NEOPLASM MALIGNANT
     Dosage: TOTAL DAILY DOSE: 800 MG  UNIT DOSE: 200 MG
     Route: 048
     Dates: start: 20090709, end: 20090729
  2. BASEN OD [Concomitant]
     Route: 048
     Dates: start: 20090820
  3. BASEN OD [Concomitant]
     Dosage: SINCE BEFORE ADMINISTRATION
     Route: 048
     Dates: end: 20090819
  4. NOVORAPID [Concomitant]
     Dosage: SINCE BEFORE ADMINISTRATION
     Route: 058
  5. NU-LOTAN [Concomitant]
     Dosage: SINCE BEFORE ADMINISTRATION
     Route: 048
  6. ASPIRIN [Concomitant]
     Dosage: UNIT DOSE: 100 MG
     Route: 048
  7. MAINTATE [Concomitant]
     Dosage: SINCE BEFORE ADMINISTRATION
     Route: 048
  8. LASIX [Concomitant]
     Dosage: SINCE BEFORE ADMINISTRATION
     Route: 048
  9. AMLODIN OD [Concomitant]
     Route: 048
     Dates: start: 20090820
  10. AMLODIN OD [Concomitant]
     Dosage: SINCE BEFORE ADMINISTRATION
     Route: 048
     Dates: end: 20090819
  11. PARIET [Concomitant]
     Indication: GASTRITIS PROPHYLAXIS
     Dosage: SINCE BEFORE ADMINISTRATION
     Route: 048
     Dates: end: 20090819
  12. SIGMART [Concomitant]
     Route: 048
     Dates: start: 20090820
  13. SIGMART [Concomitant]
     Dosage: SINCE BEFORE ADMINISTRATION
     Route: 048
     Dates: end: 20090819
  14. KALIMATE [Concomitant]
     Dosage: SINCE BEFORE ADMINISTRATION
     Route: 048
     Dates: end: 20090819
  15. LIPITOR [Concomitant]
     Dosage: SINCE BEFORE ADMINISTRATION
     Route: 048
     Dates: end: 20090819
  16. SELBEX [Concomitant]
     Indication: GASTRITIS PROPHYLAXIS
     Route: 048
     Dates: start: 20090820
  17. ITOROL [Concomitant]
     Route: 048
     Dates: start: 20090820
  18. ARGAMATE [Concomitant]
     Route: 048
     Dates: start: 20090820

REACTIONS (3)
  - ASTHMA [None]
  - CARDIAC FAILURE [None]
  - RENAL IMPAIRMENT [None]
